FAERS Safety Report 16995931 (Version 2)
Quarter: 2019Q4

REPORT INFORMATION
  Report Type: Report from Study
  Country: BE (occurrence: BE)
  Receive Date: 20191105
  Receipt Date: 20191213
  Transmission Date: 20200122
  Serious: Yes (Death, Hospitalization, Other)
  Sender: FDA-Public Use
  Company Number: BE-PFIZER INC-2019451885

PATIENT
  Age: 77 Year
  Sex: Female

DRUGS (2)
  1. TEMESTA [LORAZEPAM] [Suspect]
     Active Substance: LORAZEPAM
     Indication: AGITATION
     Dosage: 3 DF SINGLE (1 DF = 5 MG)
     Dates: start: 20191013, end: 20191013
  2. LORLATINIB [Suspect]
     Active Substance: LORLATINIB
     Indication: NON-SMALL CELL LUNG CANCER
     Dosage: 100 MG, 1
     Dates: start: 20191010, end: 20191102

REACTIONS (4)
  - Agitation [Recovered/Resolved with Sequelae]
  - Urinary tract infection [Unknown]
  - Somnolence [Unknown]
  - Pneumonia [Fatal]

NARRATIVE: CASE EVENT DATE: 201910
